FAERS Safety Report 5978262-9 (Version None)
Quarter: 2008Q4

REPORT INFORMATION
  Report Type: 
  Country: None (occurrence: None)
  Receive Date: 20081204
  Receipt Date: 20081125
  Transmission Date: 20090506
  Serious: Yes (Other)
  Sender: FDA-Public Use
  Company Number: US-ALLERGAN-0815100US

PATIENT
  Sex: Female

DRUGS (17)
  1. PREDNISOLONE ACETATE, 1.0% [Suspect]
     Indication: POSTOPERATIVE CARE
     Dosage: UNK, UNKNOWN
     Route: 047
  2. PREDNISOLONE ACETATE, 1.0% [Suspect]
     Dosage: UNK, QID
     Route: 047
  3. PREDNISOLONE ACETATE, 1.0% [Suspect]
     Dosage: UNK, QID
     Route: 047
  4. PREDNISOLONE ACETATE, 1.0% [Suspect]
     Dosage: TAPERED OVER 1 MONTH
     Route: 047
  5. TETRACAINE POLYGYL STERILE OPHTHALMIC SOLUTION [Suspect]
     Indication: EYE DISORDER
     Dosage: UNK, PRN
     Route: 047
  6. TETRACAINE POLYGYL STERILE OPHTHALMIC SOLUTION [Suspect]
     Indication: ANAESTHETIC PREMEDICATION
     Dosage: UNK, Q1/2HR WHILE AWAKE
     Route: 047
  7. TETRACAINE POLYGYL STERILE OPHTHALMIC SOLUTION [Suspect]
     Indication: POSTOPERATIVE CARE
  8. BROMFENAC SODIUM [Suspect]
     Indication: POSTOPERATIVE CARE
     Dosage: UNK, UNKNOWN
     Route: 047
  9. BROMFENAC SODIUM [Suspect]
     Dosage: UNK, BID
     Route: 047
  10. MOXIFLOXACIN HCL [Suspect]
     Indication: POSTOPERATIVE CARE
     Dosage: UNK, QID
     Route: 047
  11. ARTIFICIAL TEARS [Suspect]
     Indication: POSTOPERATIVE CARE
     Dosage: UNK, QID
     Route: 047
  12. TOBRAMYCIN [Suspect]
     Indication: POSTOPERATIVE CARE
     Dosage: UNK, Q1HR WHILE AWAKE
     Route: 047
  13. TOBRAMYCIN [Suspect]
     Indication: KERATITIS
  14. SOFT BANDAGE CONTACT LENS [Concomitant]
     Indication: POSTOPERATIVE CARE
  15. SOFT BANDAGE CONTACT LENS [Concomitant]
  16. PAIN MEDICATIONS [Concomitant]
     Indication: POSTOPERATIVE CARE
     Route: 048
  17. PAIN MEDICATIONS [Concomitant]

REACTIONS (7)
  - CORNEAL EPITHELIUM DEFECT [None]
  - CORNEAL INFILTRATES [None]
  - KERATITIS [None]
  - KERATOPATHY [None]
  - PAIN [None]
  - PHOTOPHOBIA [None]
  - VISUAL ACUITY REDUCED [None]
